FAERS Safety Report 21322058 (Version 1)
Quarter: 2022Q3

REPORT INFORMATION
  Report Type: Spontaneous
  Country: BR (occurrence: BR)
  Receive Date: 20220912
  Receipt Date: 20220912
  Transmission Date: 20221026
  Serious: Yes (Other)
  Sender: FDA-Public Use
  Company Number: BR-CHEPLA-2022007786

PATIENT
  Sex: Female
  Weight: 72 kg

DRUGS (4)
  1. CLONAZEPAM [Suspect]
     Active Substance: CLONAZEPAM
     Indication: Insomnia
     Dosage: 2 A 3 DROPS SPORADICALLY STARTED MANY YEARS AGO (SHE WAS UNABLE TO INFORM)
     Route: 048
  2. CLONAZEPAM [Suspect]
     Active Substance: CLONAZEPAM
     Indication: Nervousness
     Dosage: 2 A 3 DROPS SPORADICALLY STARTED MANY YEARS AGO (SHE WAS UNABLE TO INFORM)
     Route: 048
  3. CLONAZEPAM [Suspect]
     Active Substance: CLONAZEPAM
     Indication: Insomnia
     Dosage: 10 DROPS
     Route: 048
  4. CLONAZEPAM [Suspect]
     Active Substance: CLONAZEPAM
     Indication: Nervousness
     Dosage: 10 DROPS
     Route: 048

REACTIONS (6)
  - Breast cancer [Not Recovered/Not Resolved]
  - Sleep disorder [Unknown]
  - Product use in unapproved indication [Not Recovered/Not Resolved]
  - Incorrect product administration duration [Not Recovered/Not Resolved]
  - Product taste abnormal [Not Recovered/Not Resolved]
  - Product quality issue [Not Recovered/Not Resolved]
